FAERS Safety Report 9330521 (Version 2)
Quarter: 2013Q2

REPORT INFORMATION
  Report Type: Report from Study
  Country: SK (occurrence: SK)
  Receive Date: 20130605
  Receipt Date: 20130625
  Transmission Date: 20140414
  Serious: Yes (Death)
  Sender: FDA-Public Use
  Company Number: SK-ROCHE-1229936

PATIENT
  Sex: Female

DRUGS (6)
  1. CAPECITABINE [Suspect]
     Indication: COLON CANCER
     Route: 065
     Dates: start: 20130404, end: 20130407
  2. CIPROFLOXACIN [Concomitant]
  3. COLIMYCIN [Concomitant]
  4. MEROPENEM [Concomitant]
  5. SINGULAIR [Concomitant]
  6. HYDROKORTYZON [Concomitant]
     Route: 065
     Dates: start: 20130404, end: 20130417

REACTIONS (2)
  - Respiratory failure [Fatal]
  - Bronchiectasis [Fatal]
